FAERS Safety Report 7726839-2 (Version None)
Quarter: 2011Q3

REPORT INFORMATION
  Report Type: 
  Country: None (occurrence: None)
  Receive Date: 20110902
  Receipt Date: 20110824
  Transmission Date: 20111222
  Serious: Yes (Hospitalization)
  Sender: FDA-Public Use
  Company Number: IE-GLAXOSMITHKLINE-Z0003901A

PATIENT
  Sex: Female
  Weight: 68.5 kg

DRUGS (3)
  1. VOTRIENT [Suspect]
     Indication: OVARIAN CANCER
     Dosage: 800MG PER DAY
     Route: 048
     Dates: start: 20100330
  2. SOLIFENACIN SUCCINATE [Concomitant]
     Indication: URINARY INCONTINENCE
     Dosage: 10MG PER DAY
     Route: 048
     Dates: start: 20100402, end: 20100406
  3. CIPROFLOXACIN [Concomitant]
     Indication: URINARY TRACT INFECTION
     Route: 048
     Dates: start: 20100402, end: 20100408

REACTIONS (1)
  - ERYTHEMA MULTIFORME [None]
